FAERS Safety Report 8143970-0 (Version None)
Quarter: 2012Q1

REPORT INFORMATION
  Report Type: 
  Country: None (occurrence: None)
  Receive Date: 20120217
  Receipt Date: 20120217
  Transmission Date: 20120608
  Serious: Yes (Other)
  Sender: FDA-Public Use
  Company Number: None

PATIENT
  Sex: Female
  Weight: 76.203 kg

DRUGS (1)
  1. CLINDAMYCIN HCL [Suspect]
     Indication: TOOTH INFECTION
     Dosage: 1 150MG CAPSULE
     Route: 048
     Dates: start: 20120207, end: 20120214

REACTIONS (4)
  - BONE PAIN [None]
  - ARTHRALGIA [None]
  - POLLAKIURIA [None]
  - URINE OUTPUT INCREASED [None]
